FAERS Safety Report 8177921-X (Version None)
Quarter: 2012Q1

REPORT INFORMATION
  Report Type: 
  Country: None (occurrence: None)
  Receive Date: 20120130
  Receipt Date: 20110509
  Transmission Date: 20120608
  Serious: Yes (Other)
  Sender: FDA-Public Use
  Company Number: 032416

PATIENT
  Age: 36 Year
  Sex: Female

DRUGS (1)
  1. KEPPRA [Suspect]
     Indication: EPILEPSY

REACTIONS (1)
  - SUICIDAL IDEATION [None]
